FAERS Safety Report 7421980 (Version 3)
Quarter: 2013Q4

REPORT INFORMATION
  Report Type: Spontaneous
  Country: US (occurrence: US)
  Receive Date: 20100616
  Receipt Date: 20131001
  Transmission Date: 20140711
  Serious: Yes (Hospitalization, Other)
  Sender: FDA-Public Use
  Company Number: US-ASTRAZENECA-2009UW08967

PATIENT
  Age: 47 Year
  Sex: Female
  Weight: 57.2 kg

DRUGS (22)
  1. PULMICORT FLEXHALER [Suspect]
     Indication: ASTHMA
     Route: 055
     Dates: end: 20130511
  2. PULMICORT FLEXHALER [Suspect]
     Indication: ASTHMA
     Route: 055
  3. PULMICORT FLEXHALER [Suspect]
     Indication: ASTHMA
     Route: 055
  4. PULMICORT FLEXHALER [Suspect]
     Indication: ASTHMA
     Route: 055
  5. PULMICORT FLEXHALER [Suspect]
     Indication: ASTHMA
     Route: 055
  6. PULMICORT FLEXHALER [Suspect]
     Indication: ASTHMA
     Route: 055
  7. NEXIUM [Suspect]
     Route: 048
  8. LISINOPRIL [Suspect]
     Route: 048
  9. ARIMIDEX [Suspect]
     Indication: BREAST CANCER
     Route: 048
     Dates: start: 2011
  10. ZOMETA [Suspect]
     Dosage: 4MG/5ML
     Route: 042
  11. HYDROCODONE-ACETAMINOPHEN [Concomitant]
     Dosage: 10-325 MG AS DIRECTED
  12. VITAMIN D3 [Concomitant]
     Dosage: 2000 UNIT,AS DIRECTED DAILY
  13. CALCIUM+D [Concomitant]
     Dosage: 600-200 MG-UNIT, 1 DF WITH FOOD, DAILY
  14. DYAZIDE [Concomitant]
     Dosage: 37.5-25 M, 1 DF IN THE MORNING
     Route: 048
  15. DONATAL NA ELIXIR [Concomitant]
     Dosage: ONE TEASPOONFUL (5 ML) THREE TIMES A DAY AS NEEDED
  16. PROAIR HFA [Concomitant]
     Dosage: 108 (90 BASE) MCG/ACT, 2 PUFFS Q4 HRS PRN
  17. AMBIEN [Concomitant]
     Dosage: 10 MG AT BEDTIME, AS NEEDED (ONCE A DAY)
  18. XYZAL [Concomitant]
     Dates: end: 20130110
  19. RED YEAST RICE [Concomitant]
     Route: 048
  20. LEVOTHYROXINE SODIUM [Concomitant]
     Dosage: 1 DF EVERY MORNING ON AN EMPTY STOMACH
  21. ALBUTEROL SULFATE [Concomitant]
     Dosage: 3 ML EVERY FOUR HOURS, AS NEEDED
     Route: 055
  22. FOLIC ACID [Concomitant]

REACTIONS (30)
  - Hypothyroidism [Unknown]
  - Spinal osteoarthritis [Unknown]
  - Vertebral foraminal stenosis [Unknown]
  - Uterine leiomyoma [Unknown]
  - Haemorrhage [Unknown]
  - Thyroid neoplasm [Unknown]
  - Pneumothorax [Unknown]
  - Infection [Unknown]
  - Sleep apnoea syndrome [Unknown]
  - Rotator cuff syndrome [Unknown]
  - Breast cancer [Unknown]
  - Asthma [Unknown]
  - Dyspnoea [Unknown]
  - Fatigue [Unknown]
  - Essential hypertension [Unknown]
  - Rhinitis allergic [Unknown]
  - Hyperlipidaemia [Unknown]
  - Anaemia [Unknown]
  - Gastritis [Unknown]
  - Oesophagitis [Unknown]
  - Anaemia [Unknown]
  - Gastrooesophageal reflux disease [Unknown]
  - Hiatus hernia [Unknown]
  - Back pain [Unknown]
  - Fall [Unknown]
  - Intervertebral disc protrusion [Unknown]
  - Hepatic cyst [Unknown]
  - Renal cyst [Unknown]
  - Drug ineffective [Unknown]
  - Drug hypersensitivity [Unknown]
